FAERS Safety Report 4811148-1 (Version None)
Quarter: 2005Q4

REPORT INFORMATION
  Report Type: 
  Country: None (occurrence: None)
  Receive Date: 20051027
  Receipt Date: 20051019
  Transmission Date: 20060501
  Serious: Yes (Hospitalization)
  Sender: FDA-Public Use
  Company Number: CH-GLAXOSMITHKLINE-B0398386A

PATIENT
  Age: 72 Year
  Sex: Male

DRUGS (3)
  1. VALTREX [Suspect]
     Indication: HERPES ZOSTER
     Dosage: 500MG THREE TIMES PER DAY
     Route: 048
     Dates: start: 20051001, end: 20051015
  2. MARCOUMAR [Concomitant]
     Indication: PRE-EXISTING DISEASE
     Dosage: 3MG TWICE PER DAY
     Route: 065
     Dates: start: 20050401
  3. UNSPECIFIED MEDICATION [Concomitant]

REACTIONS (3)
  - FACIAL PARESIS [None]
  - HAEMATOMA [None]
  - NEUROBORRELIOSIS [None]
